FAERS Safety Report 7981570-3 (Version None)
Quarter: 2011Q4

REPORT INFORMATION
  Report Type: 
  Country: None (occurrence: None)
  Receive Date: 20111215
  Receipt Date: 20111209
  Transmission Date: 20120403
  Serious: Yes (Hospitalization)
  Sender: FDA-Public Use
  Company Number: US-VERTEX PHARMACEUTICALS INC.-AE-2011-004759

PATIENT
  Sex: Male
  Weight: 72.64 kg

DRUGS (3)
  1. PEGASYS [Concomitant]
     Indication: HEPATITIS C
     Route: 058
     Dates: start: 20110916, end: 20111120
  2. RIBAVIRIN [Concomitant]
     Indication: HEPATITIS C
     Route: 048
     Dates: start: 20110916, end: 20111120
  3. INCIVEK [Suspect]
     Indication: HEPATITIS C
     Route: 048
     Dates: start: 20110916, end: 20111120

REACTIONS (10)
  - ANAEMIA [None]
  - ANORECTAL DISCOMFORT [None]
  - LACERATION [None]
  - INSOMNIA [None]
  - HAEMORRHOIDS [None]
  - DIARRHOEA [None]
  - MYALGIA [None]
  - SUICIDAL IDEATION [None]
  - RASH GENERALISED [None]
  - PRURITUS [None]
